FAERS Safety Report 25810271 (Version 1)
Quarter: 2025Q3

REPORT INFORMATION
  Report Type: Spontaneous
  Country: US (occurrence: US)
  Receive Date: 20250917
  Receipt Date: 20250917
  Transmission Date: 20251020
  Serious: No
  Sender: AUROBINDO
  Company Number: US-AUROBINDO-AUR-APL-2025-034612

PATIENT
  Age: 40 Year
  Sex: Male

DRUGS (1)
  1. NICOTINE POLACRILEX [Suspect]
     Active Substance: NICOTINE
     Indication: Taste disorder
     Route: 065
     Dates: start: 20250610

REACTIONS (3)
  - Hiccups [Unknown]
  - Product use issue [Unknown]
  - Product solubility abnormal [Unknown]
